FAERS Safety Report 13469280 (Version 1)
Quarter: 2017Q2

REPORT INFORMATION
  Report Type: Spontaneous
  Country: US (occurrence: US)
  Receive Date: 20170421
  Receipt Date: 20170421
  Transmission Date: 20170830
  Serious: Yes (Other)
  Sender: FDA-Public Use
  Company Number: PHEH2017US011185

PATIENT
  Sex: Female

DRUGS (1)
  1. ESTROGEN [Suspect]
     Active Substance: ESTROGENS
     Indication: PRODUCT USED FOR UNKNOWN INDICATION
     Dosage: UNK (SWITCH THE PATCH EVERY 2 DAYS)
     Route: 062

REACTIONS (4)
  - Haematochezia [Unknown]
  - Paraesthesia [Unknown]
  - Dry mouth [Unknown]
  - Thirst [Unknown]

NARRATIVE: CASE EVENT DATE: 20170413
